FAERS Safety Report 11592585 (Version 1)
Quarter: 2015Q4

REPORT INFORMATION
  Report Type: Spontaneous
  Country: US (occurrence: US)
  Receive Date: 20151005
  Receipt Date: 20151005
  Transmission Date: 20160304
  Serious: No
  Sender: FDA-Public Use
  Company Number: US-ENDO PHARMACEUTICALS INC.-BACL20140009

PATIENT
  Sex: Female

DRUGS (3)
  1. BACLOFEN TABLETS 10MG [Suspect]
     Active Substance: BACLOFEN
     Indication: PAIN
     Dosage: 1/2 TO 1 TABLET
     Route: 048
     Dates: start: 20140827
  2. BACLOFEN TABLETS 10MG [Suspect]
     Active Substance: BACLOFEN
     Indication: MUSCLE SPASMS
     Dosage: 1/2 TABLET
     Route: 048
  3. BACLOFEN TABLETS 10MG [Suspect]
     Active Substance: BACLOFEN
     Indication: FIBROMYALGIA

REACTIONS (6)
  - Tendonitis [Not Recovered/Not Resolved]
  - Pain of skin [Not Recovered/Not Resolved]
  - Enuresis [Recovered/Resolved]
  - Nasopharyngitis [Not Recovered/Not Resolved]
  - Pollakiuria [Not Recovered/Not Resolved]
  - Dysuria [Not Recovered/Not Resolved]

NARRATIVE: CASE EVENT DATE: 2014
